FAERS Safety Report 7400239-7 (Version None)
Quarter: 2011Q2

REPORT INFORMATION
  Report Type: 
  Country: None (occurrence: None)
  Receive Date: 20110407
  Receipt Date: 20110325
  Transmission Date: 20111010
  Serious: Yes (Death, Other)
  Sender: FDA-Public Use
  Company Number: AU-ACTELION-A-CH2011-46760

PATIENT
  Sex: Female
  Weight: 42 kg

DRUGS (2)
  1. TRACLEER [Suspect]
     Indication: PULMONARY ARTERIAL HYPERTENSION
     Dosage: 125 MG, BID
     Route: 048
     Dates: start: 20071101, end: 20110323
  2. TRACLEER [Suspect]
     Dosage: 62.5 MG, BID
     Route: 048
     Dates: start: 20071029, end: 20071101

REACTIONS (10)
  - GENERAL PHYSICAL HEALTH DETERIORATION [None]
  - PULMONARY ARTERIAL HYPERTENSION [None]
  - PALLIATIVE CARE [None]
  - SCLERODERMA [None]
  - DISEASE PROGRESSION [None]
  - DECREASED APPETITE [None]
  - SCLERODERMA RENAL CRISIS [None]
  - STRESS CARDIOMYOPATHY [None]
  - DIALYSIS [None]
  - PERICARDIAL EFFUSION [None]
